FAERS Safety Report 6015756-4 (Version None)
Quarter: 2008Q4

REPORT INFORMATION
  Report Type: 
  Country: None (occurrence: None)
  Receive Date: 20081216
  Receipt Date: 20070222
  Transmission Date: 20090506
  Serious: Yes (Other)
  Sender: FDA-Public Use
  Company Number: HQWYE154228FEB07

PATIENT

DRUGS (4)
  1. EFFEXOR XR [Suspect]
     Indication: GENERALISED ANXIETY DISORDER
     Dosage: 150 MG 1X PER 1 DAY, TRANSPLACENTAL
     Route: 064
     Dates: start: 19980820
  2. EFFEXOR XR [Suspect]
     Indication: MAJOR DEPRESSION
     Dosage: 150 MG 1X PER 1 DAY, TRANSPLACENTAL
     Route: 064
     Dates: start: 19980820
  3. EFFEXOR XR [Suspect]
     Indication: OBSESSIVE-COMPULSIVE DISORDER
     Dosage: 150 MG 1X PER 1 DAY, TRANSPLACENTAL
     Route: 064
     Dates: start: 19980820
  4. ZOLOFT [Concomitant]

REACTIONS (2)
  - FOETAL HEART RATE DECREASED [None]
  - NEONATAL ANOXIA [None]
